FAERS Safety Report 10072312 (Version 1)
Quarter: 2014Q2

REPORT INFORMATION
  Report Type: Spontaneous
  Country: CA (occurrence: CA)
  Receive Date: 20140411
  Receipt Date: 20140411
  Transmission Date: 20141212
  Serious: Yes (Other)
  Sender: FDA-Public Use
  Company Number: CA-ASTRAZENECA-2014SE23739

PATIENT
  Age: 60 Year
  Sex: Male

DRUGS (1)
  1. BRILINTA [Suspect]
     Indication: CORONARY ARTERIAL STENT INSERTION
     Route: 048
     Dates: start: 201306

REACTIONS (2)
  - Graft overgrowth [Recovering/Resolving]
  - Impaired healing [Not Recovered/Not Resolved]
